FAERS Safety Report 9913014 (Version 3)
Quarter: 2014Q1

REPORT INFORMATION
  Report Type: Spontaneous
  Country: DE (occurrence: DE)
  Receive Date: 20140220
  Receipt Date: 20140228
  Transmission Date: 20141002
  Serious: Yes (Life-Threatening, Hospitalization, Other)
  Sender: FDA-Public Use
  Company Number: DE-JNJFOC-20140201774

PATIENT
  Age: 93 Year
  Sex: Female
  Weight: 72 kg

DRUGS (6)
  1. XARELTO [Suspect]
     Indication: PROPHYLAXIS
     Route: 048
     Dates: start: 201302, end: 201303
  2. ASS [Suspect]
     Indication: PRODUCT USED FOR UNKNOWN INDICATION
     Route: 065
  3. FOLIC ACID [Concomitant]
     Route: 065
  4. TORASEMID [Concomitant]
     Route: 065
  5. RAMIPRIL [Concomitant]
     Route: 065
  6. BISOPROLOL [Concomitant]
     Route: 065

REACTIONS (4)
  - Urinary bladder haemorrhage [Recovered/Resolved]
  - Blood urine present [Recovered/Resolved]
  - Urinary bladder haemorrhage [Recovered/Resolved]
  - Off label use [Unknown]
